FAERS Safety Report 6880501-7 (Version None)
Quarter: 2010Q3

REPORT INFORMATION
  Report Type: 
  Country: None (occurrence: None)
  Receive Date: 20100727
  Receipt Date: 20100716
  Transmission Date: 20110219
  Serious: Yes (Death)
  Sender: FDA-Public Use
  Company Number: A0872001A

PATIENT
  Age: 61 Year
  Sex: Female

DRUGS (2)
  1. AVANDIA [Suspect]
     Indication: DIABETES MELLITUS
  2. AVANDAMET [Suspect]
     Indication: DIABETES MELLITUS
     Dates: start: 20030918

REACTIONS (1)
  - ACUTE MYOCARDIAL INFARCTION [None]
